FAERS Safety Report 6410733-3 (Version None)
Quarter: 2009Q4

REPORT INFORMATION
  Report Type: 
  Country: None (occurrence: None)
  Receive Date: 20091020
  Receipt Date: 20091020
  Transmission Date: 20100525
  Serious: No
  Sender: FDA-Public Use
  Company Number: None

PATIENT
  Age: 43 Year
  Sex: Female
  Weight: 63.5036 kg

DRUGS (2)
  1. TRAMADOL HCL [Suspect]
     Indication: HEADACHE
     Dosage: PO ABOUT 5 MONTHS
     Route: 048
     Dates: start: 20071007, end: 20080309
  2. ULTRAM [Suspect]

REACTIONS (3)
  - AGGRESSION [None]
  - ANGER [None]
  - DRUG INEFFECTIVE [None]
